FAERS Safety Report 6681066-5 (Version None)
Quarter: 2010Q2

REPORT INFORMATION
  Report Type: 
  Country: None (occurrence: None)
  Receive Date: 20100414
  Receipt Date: 20100406
  Transmission Date: 20101027
  Serious: Yes (Other)
  Sender: FDA-Public Use
  Company Number: BR-ROCHE-667720

PATIENT
  Sex: Female
  Weight: 61 kg

DRUGS (8)
  1. CLONAZEPAM [Suspect]
     Indication: TINNITUS
     Dosage: OTHER INDICATION:DEPRESSION
     Route: 048
     Dates: start: 20080801
  2. CLONAZEPAM [Suspect]
     Route: 048
  3. CLONAZEPAM [Suspect]
     Route: 048
  4. CLONAZEPAM [Suspect]
     Dosage: BATCH/LOT NO. RJ0605
     Route: 048
     Dates: start: 20091001
  5. LABIRIN [Concomitant]
     Indication: LABYRINTHITIS
  6. LABIRIN [Concomitant]
     Dosage: DOSE LOWERED
  7. LABIRIN [Concomitant]
     Dosage: TAKEN WITHOUT MEDICAL CONSENT
  8. ATACAND HCT [Concomitant]
     Indication: HYPERTENSION
     Dosage: DOSE: 16/12.5 MG; FREQUENCY: HALF TABLET PER DAY
     Dates: start: 20070101

REACTIONS (16)
  - ABDOMINAL PAIN [None]
  - ABDOMINAL PAIN UPPER [None]
  - ASTHENIA [None]
  - DIZZINESS [None]
  - DRUG INEFFECTIVE [None]
  - ERYTHEMA [None]
  - FORMICATION [None]
  - HEART RATE INCREASED [None]
  - HUNGER [None]
  - INSOMNIA [None]
  - JOINT RANGE OF MOTION DECREASED [None]
  - MALAISE [None]
  - MENSTRUAL DISORDER [None]
  - NAUSEA [None]
  - POLYP [None]
  - PRURITUS [None]
